FAERS Safety Report 15720306 (Version 1)
Quarter: 2018Q4

REPORT INFORMATION
  Report Type: Spontaneous
  Country: US (occurrence: US)
  Receive Date: 20181213
  Receipt Date: 20181213
  Transmission Date: 20190205
  Serious: No
  Sender: FDA-Public Use
  Company Number: US-PERRIGO-18US003510

PATIENT
  Age: 52 Year
  Sex: Female
  Weight: 60.77 kg

DRUGS (1)
  1. MUPIROCIN. [Suspect]
     Active Substance: MUPIROCIN
     Indication: STAPHYLOCOCCAL INFECTION
     Dosage: ONE APPLICATION, TID
     Route: 045
     Dates: start: 20180118, end: 20180219

REACTIONS (3)
  - Incorrect route of product administration [Recovered/Resolved]
  - Headache [Not Recovered/Not Resolved]
  - Incorrect product administration duration [Recovered/Resolved]

NARRATIVE: CASE EVENT DATE: 20180118
